FAERS Safety Report 5597070-4 (Version None)
Quarter: 2008Q1

REPORT INFORMATION
  Report Type: 
  Country: None (occurrence: None)
  Receive Date: 20080121
  Receipt Date: 20080115
  Transmission Date: 20080703
  Serious: Yes (Other)
  Sender: FDA-Public Use
  Company Number: DE-WYE-G00833508

PATIENT
  Sex: Female

DRUGS (3)
  1. TREVILOR [Suspect]
     Route: 048
     Dates: start: 20070101, end: 20070101
  2. TREVILOR [Suspect]
     Route: 048
  3. TREVILOR [Suspect]
     Route: 048

REACTIONS (3)
  - BLOOD PRESSURE INCREASED [None]
  - OPTIC NEURITIS [None]
  - VISUAL ACUITY REDUCED [None]
